FAERS Safety Report 17111015 (Version 1)
Quarter: 2019Q4

REPORT INFORMATION
  Report Type: Spontaneous
  Country: DE (occurrence: DE)
  Receive Date: 20191204
  Receipt Date: 20191204
  Transmission Date: 20200122
  Serious: Yes (Death, Other)
  Sender: FDA-Public Use
  Company Number: DE-TEVA-2019-DE-1148180

PATIENT
  Age: 65 Year
  Sex: Male

DRUGS (1)
  1. COPAXONE [Suspect]
     Active Substance: GLATIRAMER ACETATE
     Indication: MULTIPLE SCLEROSIS
     Dosage: 20 MILLIGRAM DAILY;
     Dates: start: 19960101

REACTIONS (5)
  - Epilepsy [Unknown]
  - Death [Fatal]
  - Cerebrovascular accident [Unknown]
  - General physical health deterioration [Unknown]
  - Chemotherapy [Unknown]

NARRATIVE: CASE EVENT DATE: 2017
